FAERS Safety Report 6661597-4 (Version None)
Quarter: 2010Q1

REPORT INFORMATION
  Report Type: 
  Country: None (occurrence: None)
  Receive Date: 20100331
  Receipt Date: 20090205
  Transmission Date: 20100710
  Serious: No
  Sender: FDA-Public Use
  Company Number: US-BRISTOL-MYERS SQUIBB COMPANY-14495667

PATIENT
  Age: 70 Year
  Sex: Female
  Weight: 46 kg

DRUGS (5)
  1. ERBITUX [Suspect]
     Indication: COLORECTAL CANCER RECURRENT
     Dosage: RECENT TREATMENT ON 4FEB09.
     Dates: start: 20080301
  2. BONIVA [Concomitant]
  3. VITAMINS [Concomitant]
  4. RADIATION THERAPY [Concomitant]
     Dates: start: 20081001
  5. HERBAL MIXTURE [Concomitant]

REACTIONS (3)
  - HAEMORRHAGE [None]
  - RASH [None]
  - SKIN LACERATION [None]
